FAERS Safety Report 9351076 (Version 3)
Quarter: 2014Q1

REPORT INFORMATION
  Report Type: Spontaneous
  Country: DE (occurrence: DE)
  Receive Date: 20130617
  Receipt Date: 20140205
  Transmission Date: 20141002
  Serious: Yes (Death, Other)
  Sender: FDA-Public Use
  Company Number: PHHY2013DE061337

PATIENT
  Sex: Female
  Weight: 73 kg

DRUGS (2)
  1. AFINITOR [Suspect]
     Indication: BREAST CANCER
     Dosage: 10 MG, UNK
  2. BETA BLOCKING AGENTS [Concomitant]
     Indication: HYPERTENSION

REACTIONS (2)
  - Death [Fatal]
  - Coronary artery disease [Recovered/Resolved]
